FAERS Safety Report 8595785 (Version 4)
Quarter: 2014Q2

REPORT INFORMATION
  Report Type: Spontaneous
  Country: US (occurrence: US)
  Receive Date: 20120605
  Receipt Date: 20140505
  Transmission Date: 20141212
  Serious: Yes (Death, Other)
  Sender: FDA-Public Use
  Company Number: US-ASTRAZENECA-2012SE34720

PATIENT
  Age: 61 Year
  Sex: Female
  Weight: 80.3 kg

DRUGS (25)
  1. NEXIUM [Suspect]
     Dosage: TWICE A DAY
     Route: 048
  2. NEXIUM [Suspect]
     Route: 048
     Dates: start: 20081022
  3. NEXIUM [Suspect]
     Route: 048
     Dates: start: 20090113
  4. NEXIUM [Suspect]
     Route: 048
     Dates: start: 20120503
  5. NEXIUM [Suspect]
     Route: 048
     Dates: start: 20111027
  6. PRILOSEC [Suspect]
     Route: 048
  7. ZANTAC [Concomitant]
  8. TAGAMET [Concomitant]
  9. STEROIDS [Concomitant]
  10. ASPIRIN [Concomitant]
  11. ATORVASTATIN [Concomitant]
  12. COREG [Concomitant]
     Route: 048
  13. LASIX [Concomitant]
     Route: 048
  14. LORTAB [Concomitant]
     Indication: PAIN
     Dosage: 7.5/500 MG 1 TABLET EVERY 4 HR
     Route: 048
  15. PROZAC [Concomitant]
     Route: 048
  16. XANAX [Concomitant]
     Route: 048
  17. HYDROCHLOROTHAIZIDE [Concomitant]
     Route: 048
  18. SINGULAIR [Concomitant]
     Dates: start: 20090225
  19. FEXOFENADINE [Concomitant]
     Dates: start: 20090225
  20. MELOXICAM [Concomitant]
     Dates: start: 20090603
  21. LEVAQUIN [Concomitant]
     Dates: start: 20100201
  22. PREDNISONE [Concomitant]
     Dates: start: 20100201
  23. METRONIDAZOLE [Concomitant]
     Dates: start: 20111029
  24. TRAZADONE [Concomitant]
     Dates: start: 20120503
  25. ALENDRONATE [Concomitant]
     Dates: start: 20100525

REACTIONS (12)
  - Hypoxic-ischaemic encephalopathy [Fatal]
  - Respiratory arrest [Fatal]
  - Asthma [Fatal]
  - Myocardial infarction [Unknown]
  - Chronic obstructive pulmonary disease [Unknown]
  - Pneumonia [Unknown]
  - Osteoporosis [Unknown]
  - Spinal fracture [Unknown]
  - Osteoporotic fracture [Unknown]
  - Arthritis [Unknown]
  - Osteopenia [Unknown]
  - Osteoarthritis [Unknown]
